FAERS Safety Report 9436732 (Version 1)
Quarter: 2013Q3

REPORT INFORMATION
  Report Type: Spontaneous
  Country: US (occurrence: US)
  Receive Date: 20130802
  Receipt Date: 20130802
  Transmission Date: 20140515
  Serious: Yes (Death)
  Sender: FDA-Public Use
  Company Number: US-BAYER-2013-092207

PATIENT
  Age: 19 Year
  Sex: Female

DRUGS (3)
  1. YAZ [Suspect]
  2. PHENERGAN WITH CODEINE [Concomitant]
     Dosage: UNK
     Dates: start: 20070705
  3. CLARITHROMYCIN [Concomitant]
     Dosage: UNK
     Dates: start: 20070705

REACTIONS (1)
  - Pulmonary embolism [Fatal]
